FAERS Safety Report 4289111-1 (Version None)
Quarter: 2004Q1

REPORT INFORMATION
  Report Type: 
  Country: None (occurrence: None)
  Receive Date: 20040209
  Receipt Date: 20040209
  Transmission Date: 20041129
  Serious: No
  Sender: FDA-Public Use
  Company Number: None

PATIENT
  Age: 42 Year

DRUGS (1)
  1. PIROXICAM [Suspect]
     Indication: PLANTAR FASCIITIS
     Dosage: PO
     Route: 048
     Dates: start: 20030912, end: 20030914

REACTIONS (3)
  - OEDEMA [None]
  - PHOTODERMATOSIS [None]
  - RASH [None]
